FAERS Safety Report 25461633 (Version 1)
Quarter: 2025Q2

REPORT INFORMATION
  Report Type: Spontaneous
  Country: US (occurrence: None)
  Receive Date: 20250618
  Receipt Date: 20250618
  Transmission Date: 20250717
  Serious: Yes (Other)
  Sender: FDA-CTU
  Company Number: None

PATIENT
  Age: 87 Year
  Sex: Female
  Weight: 68.04 kg

DRUGS (6)
  1. CIPROFLOXACIN HYDROCHLORIDE [Suspect]
     Active Substance: CIPROFLOXACIN HYDROCHLORIDE
     Indication: Cystitis
     Dates: start: 20250210, end: 20250214
  2. VITAMINS [Concomitant]
     Active Substance: VITAMINS
  3. ACYCLOVIR [Concomitant]
     Active Substance: ACYCLOVIR
  4. OMEPRAZOLE [Concomitant]
     Active Substance: OMEPRAZOLE
  5. XDEMVY [Concomitant]
     Active Substance: LOTILANER
  6. IPRATROPIUM [Concomitant]
     Active Substance: IPRATROPIUM

REACTIONS (6)
  - Pain in extremity [None]
  - Muscle spasms [None]
  - Neuralgia [None]
  - Joint noise [None]
  - Tendon pain [None]
  - Pain in extremity [None]

NARRATIVE: CASE EVENT DATE: 20250210
